FAERS Safety Report 16205375 (Version 2)
Quarter: 2024Q4

REPORT INFORMATION
  Report Type: Spontaneous
  Country: DK (occurrence: DK)
  Receive Date: 20190417
  Receipt Date: 20241011
  Transmission Date: 20250115
  Serious: Yes (Death, Hospitalization, Other)
  Sender: RANBAXY
  Company Number: DK-SUN PHARMACEUTICAL INDUSTRIES EUROPE B.V-2013SUN01055

PATIENT
  Age: 17 Year
  Sex: Male

DRUGS (11)
  1. GEMCITABINE [Suspect]
     Active Substance: GEMCITABINE
     Indication: Hepatocellular carcinoma
     Dosage: 1000 MG/M2, DAY 1 AND DAY 8
     Route: 065
  2. GEMCITABINE [Suspect]
     Active Substance: GEMCITABINE
     Dosage: 1000 MG/M2, EVERY SECOND WEEK
     Route: 065
  3. CISPLATIN [Suspect]
     Active Substance: CISPLATIN
     Indication: Hepatocellular carcinoma
     Dosage: 100 MG/M2, UNK
     Route: 065
  4. CISPLATIN [Suspect]
     Active Substance: CISPLATIN
     Dosage: 70 MG/M2, DAY 1
     Route: 065
  5. TAXOL [Suspect]
     Active Substance: PACLITAXEL
     Indication: Hepatocellular carcinoma
     Dosage: 175 MG/M2, DAY 1
     Route: 065
  6. SORAFENIB [Suspect]
     Active Substance: SORAFENIB
     Indication: Hepatocellular carcinoma
     Dosage: 400 MG, BID
     Route: 065
  7. SORAFENIB [Suspect]
     Active Substance: SORAFENIB
     Dosage: 200 MG, QD (FOR TWO WEEKS)
     Route: 065
  8. SORAFENIB [Suspect]
     Active Substance: SORAFENIB
     Dosage: 400 MG, QD
     Route: 065
  9. OXALIPLATIN [Suspect]
     Active Substance: OXALIPLATIN
     Indication: Hepatocellular carcinoma
     Dosage: 85 MG/M2, UNK
     Route: 065
  10. PEGFILGRASTIM [Concomitant]
     Active Substance: PEGFILGRASTIM
     Indication: Hepatocellular carcinoma
     Dosage: 4 MILLIGRAM
     Route: 058
  11. ERLOTINIB [Concomitant]
     Active Substance: ERLOTINIB
     Indication: Hepatocellular carcinoma
     Dosage: 100 MILLIGRAM
     Route: 048

REACTIONS (17)
  - Malignant neoplasm progression [Fatal]
  - Death [Fatal]
  - Neutropenia [Unknown]
  - Vomiting [Recovered/Resolved]
  - Alopecia [Recovered/Resolved]
  - Decreased appetite [Recovered/Resolved]
  - Anaemia [Recovered/Resolved]
  - Pruritus [Unknown]
  - Rash [Unknown]
  - Diarrhoea [Recovered/Resolved]
  - Paraesthesia [Recovered/Resolved]
  - Drug ineffective [Unknown]
  - Hepatic enzyme increased [Unknown]
  - General physical health deterioration [Unknown]
  - Malignant neoplasm progression [Unknown]
  - Neutropenia [Recovered/Resolved]
  - Tinnitus [Recovered/Resolved]
